FAERS Safety Report 10882011 (Version 2)
Quarter: 2015Q1

REPORT INFORMATION
  Report Type: Spontaneous
  Country: US (occurrence: US)
  Receive Date: 20150303
  Receipt Date: 20150331
  Transmission Date: 20150721
  Serious: Yes (Other)
  Sender: FDA-Public Use
  Company Number: US-PFIZER INC-2015072909

PATIENT
  Age: 87 Year
  Sex: Male

DRUGS (1)
  1. PROCARDIA XL [Suspect]
     Active Substance: NIFEDIPINE
     Indication: HYPERTENSION
     Dosage: 90 MG, ONCE A DAY
     Dates: start: 2000

REACTIONS (1)
  - Hearing impaired [Unknown]

NARRATIVE: CASE EVENT DATE: 2000
